FAERS Safety Report 7911240-9 (Version None)
Quarter: 2011Q4

REPORT INFORMATION
  Report Type: 
  Country: None (occurrence: None)
  Receive Date: 20111108
  Receipt Date: 20111102
  Transmission Date: 20120403
  Serious: Yes (Hospitalization, Disabling, Other)
  Sender: FDA-Public Use
  Company Number: 2011SP027540

PATIENT
  Age: 43 Year
  Sex: Female

DRUGS (1)
  1. NUVARING [Suspect]
     Indication: CONTRACEPTION
     Dates: start: 20070101, end: 20090226

REACTIONS (17)
  - ABDOMINAL PAIN [None]
  - OVARIAN CYST RUPTURED [None]
  - MUSCLE STRAIN [None]
  - SPLENIC VEIN THROMBOSIS [None]
  - OVARIAN CYST [None]
  - GALACTORRHOEA [None]
  - CHEST PAIN [None]
  - MUSCLE SPASMS [None]
  - MALAISE [None]
  - ROAD TRAFFIC ACCIDENT [None]
  - NEPHROLITHIASIS [None]
  - ABDOMINAL PAIN UPPER [None]
  - NAUSEA [None]
  - MULTIPLE INJURIES [None]
  - HEPATIC STEATOSIS [None]
  - PORTAL VEIN THROMBOSIS [None]
  - UTERINE LEIOMYOMA [None]
